FAERS Safety Report 17501974 (Version 1)
Quarter: 2020Q1

REPORT INFORMATION
  Report Type: Spontaneous
  Country: US (occurrence: US)
  Receive Date: 20200305
  Receipt Date: 20200305
  Transmission Date: 20200409
  Serious: Yes (Hospitalization)
  Sender: FDA-Public Use
  Company Number: US-HORIZON-RAV-0071-2020

PATIENT
  Age: 3 Year
  Sex: Male

DRUGS (1)
  1. RAVICTI [Suspect]
     Active Substance: GLYCEROL PHENYLBUTYRATE
     Indication: AMINO ACID METABOLISM DISORDER
     Dosage: 2ML THREE TIMES DAILY
     Route: 048
     Dates: start: 201911

REACTIONS (2)
  - Pneumonia [Unknown]
  - Viral infection [Unknown]
